FAERS Safety Report 4489315-9 (Version None)
Quarter: 2004Q4

REPORT INFORMATION
  Report Type: 
  Country: None (occurrence: None)
  Receive Date: 20041029
  Receipt Date: 20041026
  Transmission Date: 20050328
  Serious: Yes (Other)
  Sender: FDA-Public Use
  Company Number: DE-MERCK-0410DEU00712

PATIENT
  Age: 67 Year
  Sex: Female

DRUGS (1)
  1. VIOXX [Suspect]
     Indication: LOCALISED OSTEOARTHRITIS
     Route: 048
     Dates: start: 20000101, end: 20020101

REACTIONS (4)
  - CEREBROVASCULAR ACCIDENT [None]
  - FATIGUE [None]
  - MYALGIA [None]
  - PRURITUS [None]
